FAERS Safety Report 7688686-X (Version None)
Quarter: 2011Q3

REPORT INFORMATION
  Report Type: 
  Country: None (occurrence: None)
  Receive Date: 20110817
  Receipt Date: 20110810
  Transmission Date: 20111222
  Serious: Yes (Hospitalization)
  Sender: FDA-Public Use
  Company Number: US-GLAXOSMITHKLINE-A0940364A

PATIENT
  Age: 20 Year
  Sex: Male

DRUGS (5)
  1. LAMOTRIGINE [Suspect]
     Indication: CONVULSION
     Dosage: 200MG TWICE PER DAY
     Route: 048
     Dates: start: 20101101, end: 20101201
  2. SYNTHROID [Concomitant]
  3. CORTEF [Concomitant]
  4. MAGNESIUM [Concomitant]
  5. LAMICTAL [Suspect]
     Indication: CONVULSION
     Dosage: 200MG TWICE PER DAY
     Route: 048
     Dates: start: 20060801

REACTIONS (2)
  - CONVULSION [None]
  - BLOOD MAGNESIUM DECREASED [None]
